FAERS Safety Report 8847959 (Version 2)
Quarter: 2012Q4

REPORT INFORMATION
  Report Type: 
  Country: DE (occurrence: DE)
  Receive Date: 20121018
  Receipt Date: 20121029
  Transmission Date: 20130627
  Serious: Yes (Death)
  Sender: FDA-Public Use
  Company Number: DE-BAXTER-2012BAX019699

PATIENT
  Sex: Male

DRUGS (1)
  1. DIANEAL PD4 GLUCOSE 1,36 % W/V [Suspect]
     Indication: PERITONEAL DIALYSIS
     Route: 033

REACTIONS (1)
  - Death [Fatal]
